FAERS Safety Report 10518717 (Version 1)
Quarter: 2014Q4

REPORT INFORMATION
  Report Type: Report from Study
  Country: GB (occurrence: GB)
  Receive Date: 20141015
  Receipt Date: 20141015
  Transmission Date: 20150528
  Serious: Yes (Other)
  Sender: FDA-Public Use
  Company Number: GB-LEO PHARMA-223620

PATIENT
  Sex: Male

DRUGS (6)
  1. ANTIDEPRESSANTS [Concomitant]
     Active Substance: UNSPECIFIED INGREDIENT
     Indication: DEPRESSION
  2. DAIVOBET [Suspect]
     Active Substance: BETAMETHASONE DIPROPIONATE\CALCIPOTRIENE
     Indication: PSORIASIS
     Dates: start: 2009
  3. PSORIDERM [Concomitant]
     Indication: PRODUCT USED FOR UNKNOWN INDICATION
  4. DAIVOBET [Suspect]
     Active Substance: BETAMETHASONE DIPROPIONATE\CALCIPOTRIENE
     Indication: PSORIASIS
     Route: 061
     Dates: start: 20090101
  5. OROMORPH [Concomitant]
     Indication: PAIN
  6. MORPHINE SULFATE/NALTREXONE HYDROCHLORIDE [Concomitant]
     Active Substance: MORPHINE SULFATE\NALTREXONE HYDROCHLORIDE
     Indication: PAIN

REACTIONS (4)
  - Drug ineffective [Unknown]
  - Onychomadesis [Unknown]
  - Pancreatitis [Unknown]
  - Nail infection [Unknown]
